FAERS Safety Report 10270979 (Version 1)
Quarter: 2014Q2

REPORT INFORMATION
  Report Type: Spontaneous
  Country: US (occurrence: None)
  Receive Date: 20140626
  Receipt Date: 20140626
  Transmission Date: 20141212
  Serious: Yes (Other)
  Sender: FDA-Public Use
  Company Number: None

PATIENT
  Age: 48 Year
  Sex: Female
  Weight: 65.77 kg

DRUGS (15)
  1. BUSPIRONE [Suspect]
     Indication: ANXIETY
     Dosage: 1 PILL QHS/BEDTIME ORAL
     Route: 048
     Dates: start: 20140521, end: 20140529
  2. BUSPIRONE [Suspect]
     Indication: INSOMNIA
     Dosage: 1 PILL QHS/BEDTIME ORAL
     Route: 048
     Dates: start: 20140521, end: 20140529
  3. BENADRYL [Concomitant]
  4. CLINDAMYCIN 1% GEL [Concomitant]
  5. COMBIVENT (IPRATROPIUM AND ALBUTEROL SULFATE) [Concomitant]
  6. COMBIVENT RESPIMAT (IPRATROPIUM BROMIDE/ALBUTEROL) [Concomitant]
  7. COMPAZINE (PROCHLORPERAZINE MALEATE) 5 MG [Concomitant]
  8. EFFEXOR XR (VENLAFAXINE EXTENDED RELEASE) 300 MG [Concomitant]
  9. HIBICLENS (CHLORHEXIDINE GLUCONATE) [Concomitant]
  10. LEVOXYL (LEVOTHYROXINE SODIUM) 150 MCG [Concomitant]
  11. MIDRIN (ISOMETHEPTENE/DICHLORALPHENAZONE/APAP) [Concomitant]
  12. NEURONTIN (GABAPENTIN) 1200 MG [Concomitant]
  13. OMEPRAZOLE 40 MG [Concomitant]
  14. POTASSIUM CHLORIDE ER CAPSULE 40 MEQ [Concomitant]
  15. PROAIR HFA (ALBUTEROL INHALER HFA) [Concomitant]

REACTIONS (4)
  - Rhinalgia [None]
  - Epistaxis [None]
  - Somnambulism [None]
  - Face injury [None]
